FAERS Safety Report 26208580 (Version 1)
Quarter: 2025Q4

REPORT INFORMATION
  Report Type: Spontaneous
  Country: US (occurrence: None)
  Receive Date: 20251227
  Receipt Date: 20251227
  Transmission Date: 20260118
  Serious: Yes (Other)
  Sender: FDA-CTU
  Company Number: None

PATIENT
  Age: 54 Year
  Sex: Female
  Weight: 99 kg

DRUGS (20)
  1. XOLAIR [Suspect]
     Active Substance: OMALIZUMAB
     Indication: Urticaria
     Dates: start: 20240916, end: 20251223
  2. LEVOXYL [Concomitant]
     Active Substance: LEVOTHYROXINE SODIUM
  3. ARMOUR THYROID [Concomitant]
     Active Substance: THYROID, PORCINE
  4. BERBERINE [Concomitant]
     Active Substance: BERBERINE
  5. Flexcin [Concomitant]
  6. HERBALS\TURMERIC [Concomitant]
     Active Substance: HERBALS\TURMERIC
  7. NAD+ [Concomitant]
  8. N Acetyl L-Cistine [Concomitant]
  9. VITAMIN D3 [Concomitant]
     Active Substance: CHOLECALCIFEROL
  10. Vitamin E, [Concomitant]
  11. COD LIVER OIL [Concomitant]
     Active Substance: COD LIVER OIL
  12. Allegra, [Concomitant]
  13. CALCIUM LACTATE [Concomitant]
     Active Substance: CALCIUM LACTATE
  14. ZYPAN [Concomitant]
  15. CONGAPLEX [Concomitant]
  16. cataplex a-c-p [Concomitant]
  17. Immunity [Concomitant]
  18. Kidney No Stonz [Concomitant]
  19. ESSENTIAL OILS [Concomitant]
     Active Substance: ESSENTIAL OILS
  20. APPLE CIDER VINEGAR [Concomitant]
     Active Substance: APPLE CIDER VINEGAR

REACTIONS (9)
  - Swollen tongue [None]
  - Tongue disorder [None]
  - Cough [None]
  - Increased upper airway secretion [None]
  - Rash [None]
  - Swelling face [None]
  - Lip swelling [None]
  - Mouth swelling [None]
  - Heart rate increased [None]

NARRATIVE: CASE EVENT DATE: 20251226
